FAERS Safety Report 12885148 (Version 1)
Quarter: 2016Q4

REPORT INFORMATION
  Report Type: Spontaneous
  Country: FR (occurrence: FR)
  Receive Date: 20161026
  Receipt Date: 20161026
  Transmission Date: 20170207
  Serious: Yes (Hospitalization)
  Sender: FDA-Public Use
  Company Number: FR-TEVA-703744ROM

PATIENT
  Age: 72 Year
  Sex: Male

DRUGS (3)
  1. MODOPAR 125 [Concomitant]
     Active Substance: BENSERAZIDE HYDROCHLORIDE\LEVODOPA
     Dosage: 4 DOSAGE FORMS DAILY; 4 DOSAGE FORMS; 1 DOSAGE FORM= 100 MG LEVODOPA + 25 MG BENSERAZIDE
     Dates: end: 20160615
  2. AZILECT [Suspect]
     Active Substance: RASAGILINE MESYLATE
     Dosage: 1 DOSAGE FORMS DAILY;
     Route: 048
     Dates: start: 20160520, end: 20160614
  3. MODOPAR 125 [Concomitant]
     Active Substance: BENSERAZIDE HYDROCHLORIDE\LEVODOPA
     Dosage: 1 DOSAGE FORM= 100 MG LEVODOPA + 25 MG BENSERAZIDE
     Dates: start: 20160622

REACTIONS (3)
  - Psychomotor skills impaired [Recovering/Resolving]
  - Hypertension [Recovered/Resolved]
  - Hallucination, visual [Recovering/Resolving]

NARRATIVE: CASE EVENT DATE: 201606
